FAERS Safety Report 8418240-3 (Version None)
Quarter: 2012Q2

REPORT INFORMATION
  Report Type: 
  Country: None (occurrence: None)
  Receive Date: 20120607
  Receipt Date: 20120529
  Transmission Date: 20120825
  Serious: Yes (Hospitalization)
  Sender: FDA-Public Use
  Company Number: DE-JNJFOC-20120411824

PATIENT
  Sex: Female
  Weight: 58 kg

DRUGS (7)
  1. XARELTO [Suspect]
     Indication: ATRIAL FIBRILLATION
     Route: 048
     Dates: start: 20120110, end: 20120120
  2. BENALAPRIL [Concomitant]
     Indication: HYPERTENSION
     Dates: start: 20120110
  3. METOPROLOL TARTRATE [Concomitant]
     Indication: HYPERTENSION
     Dates: start: 20120110
  4. ALLOPURINOL [Concomitant]
     Indication: GOUT
     Dates: start: 20120110
  5. TORSEMIDE [Concomitant]
     Indication: CARDIAC FAILURE
     Dates: start: 20120110
  6. AMLODIPINE [Concomitant]
     Indication: HYPERTENSION
     Dates: start: 20120110
  7. XARELTO [Suspect]
     Indication: CEREBROVASCULAR ACCIDENT PROPHYLAXIS
     Route: 048
     Dates: start: 20120110, end: 20120120

REACTIONS (3)
  - FACE OEDEMA [None]
  - GASTRIC HAEMORRHAGE [None]
  - OEDEMA PERIPHERAL [None]
